FAERS Safety Report 8502579-7 (Version None)
Quarter: 2012Q3

REPORT INFORMATION
  Report Type: 
  Country: None (occurrence: None)
  Receive Date: 20120711
  Receipt Date: 20120703
  Transmission Date: 20120928
  Serious: Yes (Other)
  Sender: FDA-Public Use
  Company Number: US-US-EMD SERONO, INC.-7145737

PATIENT
  Sex: Female

DRUGS (3)
  1. REBIF [Suspect]
     Route: 058
     Dates: start: 20120601
  2. UNSPECIFIED MEDICATION [Concomitant]
     Indication: RHEUMATOID ARTHRITIS
  3. REBIF [Suspect]
     Indication: MULTIPLE SCLEROSIS
     Route: 058
     Dates: start: 20110829, end: 20111201

REACTIONS (2)
  - MULTIPLE SCLEROSIS RELAPSE [None]
  - CORONARY ARTERY BYPASS [None]
